FAERS Safety Report 20305272 (Version 2)
Quarter: 2022Q1

REPORT INFORMATION
  Report Type: Spontaneous
  Country: US (occurrence: US)
  Receive Date: 20220106
  Receipt Date: 20220117
  Transmission Date: 20220423
  Serious: No
  Sender: FDA-Public Use
  Company Number: US-JNJFOC-20211257773

PATIENT
  Age: 62 Year
  Sex: Male
  Weight: 115.32 kg

DRUGS (2)
  1. STELARA [Suspect]
     Active Substance: USTEKINUMAB
     Indication: Psoriasis
     Dosage: STRENGTH:  90.00 MG/ML
     Route: 058
     Dates: start: 20210510
  2. STELARA [Suspect]
     Active Substance: USTEKINUMAB
     Dosage: STRENGTH:  90.00 MG/ML
     Route: 058

REACTIONS (4)
  - Device issue [Unknown]
  - Device physical property issue [Unknown]
  - Product dose omission issue [Unknown]
  - Psoriasis [Unknown]

NARRATIVE: CASE EVENT DATE: 20210101
